FAERS Safety Report 19808196 (Version 1)
Quarter: 2021Q3

REPORT INFORMATION
  Report Type: Spontaneous
  Country: US (occurrence: US)
  Receive Date: 20210908
  Receipt Date: 20210908
  Transmission Date: 20211014
  Serious: Yes (Other)
  Sender: FDA-Public Use
  Company Number: None

PATIENT
  Age: 71 Year
  Sex: Female
  Weight: 99.79 kg

DRUGS (13)
  1. AMARYL [Concomitant]
     Active Substance: GLIMEPIRIDE
  2. LISINOPRIL. [Concomitant]
     Active Substance: LISINOPRIL
  3. XANAX [Concomitant]
     Active Substance: ALPRAZOLAM
  4. B COMPLEX VITAMIN [Concomitant]
  5. FLECAINIDE [Concomitant]
     Active Substance: FLECAINIDE
  6. FLAXSEED [Concomitant]
     Active Substance: FLAX SEED
  7. HERCEPTIN [Concomitant]
     Active Substance: TRASTUZUMAB
  8. MUPIROCIN. [Concomitant]
     Active Substance: MUPIROCIN
  9. NYSTATIN. [Concomitant]
     Active Substance: NYSTATIN
  10. TAMOXIFEN [Concomitant]
     Active Substance: TAMOXIFEN
  11. VITAMIN D [Concomitant]
     Active Substance: VITAMIN D NOS
  12. PROMACTA [Suspect]
     Active Substance: ELTROMBOPAG OLAMINE
     Indication: THROMBOCYTOPENIA
     Route: 048
     Dates: start: 20210427
  13. FLONASE [Concomitant]
     Active Substance: FLUTICASONE PROPIONATE

REACTIONS (1)
  - Faeces discoloured [None]

NARRATIVE: CASE EVENT DATE: 20210905
